FAERS Safety Report 24186953 (Version 1)
Quarter: 2024Q3

REPORT INFORMATION
  Report Type: Spontaneous
  Country: FR (occurrence: FR)
  Receive Date: 20240808
  Receipt Date: 20240808
  Transmission Date: 20241017
  Serious: Yes (Life-Threatening, Other)
  Sender: AUROBINDO
  Company Number: FR-AFSSAPS-PP2024000835

PATIENT
  Age: 76 Year
  Sex: Female
  Weight: 41 kg

DRUGS (2)
  1. ALPRAZOLAM [Interacting]
     Active Substance: ALPRAZOLAM
     Indication: Anxiety
     Dosage: 0.5 MILLIGRAM, ONCE A DAY (0.50MG/ J)
     Route: 048
     Dates: start: 20240703, end: 20240707
  2. CLOZAPINE [Interacting]
     Active Substance: CLOZAPINE
     Indication: Hallucination
     Dosage: UNK (A QUARTER OF A TABLET / D)
     Route: 048
     Dates: start: 20240703

REACTIONS (1)
  - Coma [Recovered/Resolved]

NARRATIVE: CASE EVENT DATE: 20240707
